FAERS Safety Report 4679640-0 (Version None)
Quarter: 2005Q2

REPORT INFORMATION
  Report Type: 
  Country: None (occurrence: None)
  Receive Date: 20050531
  Receipt Date: 20050509
  Transmission Date: 20051028
  Serious: Yes (Hospitalization)
  Sender: FDA-Public Use
  Company Number: PAR_0050_2005

PATIENT
  Age: 52 Year
  Sex: Male

DRUGS (3)
  1. IBUPROFEN [Suspect]
     Dosage: DF  PO
     Route: 048
     Dates: start: 20050321, end: 20050325
  2. MICARDIS [Suspect]
     Indication: HYPERTENSION
     Dosage: PO
     Route: 048
     Dates: end: 20050325
  3. ROSUVASTATIN CALCIUM [Concomitant]

REACTIONS (3)
  - CONFUSIONAL STATE [None]
  - DELIRIUM TREMENS [None]
  - NEPHRITIS [None]
